FAERS Safety Report 8479532-5 (Version None)
Quarter: 2012Q2

REPORT INFORMATION
  Report Type: 
  Country: None (occurrence: None)
  Receive Date: 20120629
  Receipt Date: 20120618
  Transmission Date: 20120825
  Serious: Yes (Hospitalization, Other)
  Sender: FDA-Public Use
  Company Number: US-BRISTOL-MYERS SQUIBB COMPANY-16720922

PATIENT
  Age: 28 Year
  Sex: Female

DRUGS (6)
  1. DOXORUBICIN HCL [Suspect]
     Indication: OVARIAN CANCER
     Dosage: REDUCED TO 30 MG/M2
     Route: 042
  2. ETOPOPHOS PRESERVATIVE FREE [Suspect]
     Indication: OVARIAN CANCER
     Dosage: REDUCED TO 100 MG/M2
     Route: 042
  3. VINBLASTINE SULFATE [Suspect]
     Indication: OVARIAN CANCER
     Dosage: OVER 30 MIN ON DAY 1
     Route: 042
  4. CISPLATIN [Suspect]
     Indication: OVARIAN CANCER
     Dosage: REDUCED TO 45 MG/M2
     Route: 042
  5. CYCLOPHOSPHAMIDE [Suspect]
     Indication: OVARIAN CANCER
     Dosage: OVER 60 MIN ON DAY 2
     Route: 042
  6. BLEOMYCIN SULFATE [Suspect]
     Indication: OVARIAN CANCER
     Dosage: HELD FOR CYCLES #5 AND #6
     Route: 042

REACTIONS (6)
  - STREPTOCOCCAL BACTERAEMIA [None]
  - NAUSEA [None]
  - PANCYTOPENIA [None]
  - VOMITING [None]
  - RENAL FAILURE ACUTE [None]
  - PERIPHERAL SENSORIMOTOR NEUROPATHY [None]
